FAERS Safety Report 14608713 (Version 1)
Quarter: 2018Q1

REPORT INFORMATION
  Report Type: Spontaneous
  Country: US (occurrence: US)
  Receive Date: 20180307
  Receipt Date: 20180307
  Transmission Date: 20180509
  Serious: No
  Sender: FDA-Public Use
  Company Number: US-ABBVIE-17P-163-1924996-00

PATIENT
  Sex: Male

DRUGS (3)
  1. SYNTHROID [Concomitant]
     Active Substance: LEVOTHYROXINE SODIUM
     Indication: PRODUCT USED FOR UNKNOWN INDICATION
  2. TESTOSTERONE. [Suspect]
     Active Substance: TESTOSTERONE
     Indication: SECONDARY HYPOGONADISM
     Route: 050
  3. ANDROGEL [Suspect]
     Active Substance: TESTOSTERONE
     Indication: SECONDARY HYPOGONADISM
     Route: 061

REACTIONS (4)
  - Drug ineffective [Not Recovered/Not Resolved]
  - Blood testosterone decreased [Not Recovered/Not Resolved]
  - Fatigue [Not Recovered/Not Resolved]
  - Asthenia [Not Recovered/Not Resolved]
